APPROVED DRUG PRODUCT: METRONIDAZOLE
Active Ingredient: METRONIDAZOLE
Strength: 500MG
Dosage Form/Route: TABLET;ORAL
Application: A070044 | Product #001 | TE Code: AB
Applicant: WATSON LABORATORIES INC
Approved: Feb 8, 1985 | RLD: No | RS: No | Type: RX